FAERS Safety Report 19391729 (Version 2)
Quarter: 2021Q2

REPORT INFORMATION
  Report Type: Spontaneous
  Country: US (occurrence: US)
  Receive Date: 20210609
  Receipt Date: 20210630
  Transmission Date: 20210717
  Serious: No
  Sender: FDA-Public Use
  Company Number: US-ORGANON-O2106USA000670

PATIENT
  Age: 29 Year
  Sex: Female
  Weight: 53.07 kg

DRUGS (2)
  1. NEXPLANON [Suspect]
     Active Substance: ETONOGESTREL
     Indication: CONTRACEPTION
     Dosage: ONE EVERY THREE YEARS, RIGHT ARM
     Route: 059
     Dates: start: 20210503, end: 20210527
  2. NEXPLANON [Suspect]
     Active Substance: ETONOGESTREL
     Indication: CONTRACEPTION
     Dosage: PATIENT HAD NEXPLANON IN SEVERAL TIMES
     Route: 059

REACTIONS (5)
  - Implant site paraesthesia [Recovered/Resolved]
  - Implant site bruising [Recovered/Resolved]
  - Medical device site discomfort [Recovered/Resolved]
  - Implant site hypoaesthesia [Recovered/Resolved]
  - Implant site pain [Recovered/Resolved]

NARRATIVE: CASE EVENT DATE: 20210506
